FAERS Safety Report 15317860 (Version 1)
Quarter: 2018Q3

REPORT INFORMATION
  Report Type: Report from Study
  Country: US (occurrence: US)
  Receive Date: 20180824
  Receipt Date: 20180824
  Transmission Date: 20181010
  Serious: Yes (Other)
  Sender: FDA-Public Use
  Company Number: PHHY2016US099452

PATIENT
  Age: 34 Year
  Sex: Female

DRUGS (1)
  1. GILENYA [Suspect]
     Active Substance: FINGOLIMOD HYDROCHLORIDE
     Indication: MULTIPLE SCLEROSIS
     Dosage: UNK, QD
     Route: 048

REACTIONS (13)
  - Hand fracture [Recovered/Resolved]
  - Affect lability [Unknown]
  - Cellulitis [Recovered/Resolved]
  - Sciatica [Unknown]
  - Blood cholesterol increased [Unknown]
  - Animal bite [Recovered/Resolved]
  - Low density lipoprotein increased [Unknown]
  - Fatigue [Unknown]
  - Influenza [Recovered/Resolved]
  - Peripheral nerve paresis [Unknown]
  - Pain in extremity [Unknown]
  - Musculoskeletal pain [Unknown]
  - Cognitive disorder [Unknown]

NARRATIVE: CASE EVENT DATE: 20160321
